FAERS Safety Report 8077189-9 (Version None)
Quarter: 2012Q1

REPORT INFORMATION
  Report Type: 
  Country: None (occurrence: None)
  Receive Date: 20120127
  Receipt Date: 20120118
  Transmission Date: 20120608
  Serious: Yes (Hospitalization)
  Sender: FDA-Public Use
  Company Number: US-ROCHE-1031857

PATIENT
  Sex: Female
  Weight: 74.8 kg

DRUGS (12)
  1. MABTHERA [Suspect]
     Route: 048
     Dates: start: 20110825
  2. FERROUS SULFATE TAB [Concomitant]
     Dates: start: 20111126
  3. PROMETHAZINE [Concomitant]
     Dates: start: 20101102
  4. TRAMADOL HCL [Concomitant]
     Dates: start: 20110131
  5. XELODA [Suspect]
     Route: 048
     Dates: start: 20110825
  6. MABTHERA [Suspect]
     Indication: PANCREATIC CARCINOMA
     Route: 048
     Dates: start: 20110801, end: 20110810
  7. IBUPROFEN (ADVIL) [Concomitant]
     Dates: start: 20110701
  8. COUMADIN [Concomitant]
     Dates: start: 20110302
  9. METOCLOPRAMIDE [Concomitant]
     Dates: start: 20110118
  10. ONDANSETRON HCL [Concomitant]
     Dates: start: 20110118
  11. KEPPRA [Concomitant]
     Dates: start: 20101127
  12. XELODA [Suspect]
     Indication: PANCREATIC CARCINOMA
     Route: 048
     Dates: start: 20110801, end: 20110810

REACTIONS (3)
  - NAUSEA [None]
  - VOMITING [None]
  - OBSTRUCTION GASTRIC [None]
